FAERS Safety Report 9078529 (Version 1)
Quarter: 2013Q1

REPORT INFORMATION
  Report Type: Report from Study
  Country: US (occurrence: US)
  Receive Date: 20130130
  Receipt Date: 20130130
  Transmission Date: 20140127
  Serious: No
  Sender: FDA-Public Use
  Company Number: US-ABBOTT-12P-163-0976436-00

PATIENT
  Age: 45 Year
  Sex: Female

DRUGS (6)
  1. HUMIRA [Suspect]
     Indication: CROHN^S DISEASE
     Dates: start: 20120829
  2. XANAX [Concomitant]
     Indication: PRODUCT USED FOR UNKNOWN INDICATION
     Dosage: ORDERED UP TO 3 TIMES A DAY
  3. IRON [Concomitant]
     Indication: ANAEMIA
  4. FOLIC ACID [Concomitant]
     Indication: CROHN^S DISEASE
  5. VITAMIN B 12 [Concomitant]
     Indication: CROHN^S DISEASE
     Dosage: 1000MCG/ML EVERY MONTH
  6. CALTRATE WITH VITAMIN D [Concomitant]
     Indication: CROHN^S DISEASE

REACTIONS (2)
  - Injection site bruising [Recovering/Resolving]
  - Injection site pain [Recovering/Resolving]
